FAERS Safety Report 4744570-2 (Version None)
Quarter: 2005Q3

REPORT INFORMATION
  Report Type: 
  Country: None (occurrence: None)
  Receive Date: 20050812
  Receipt Date: 20050805
  Transmission Date: 20060218
  Serious: Yes (Hospitalization)
  Sender: FDA-Public Use
  Company Number: GR-ABBOTT-05P-066-0307856-01

PATIENT
  Sex: Female
  Weight: 71 kg

DRUGS (1)
  1. HUMIRA [Suspect]
     Indication: RHEUMATOID ARTHRITIS
     Route: 058
     Dates: start: 20041115

REACTIONS (2)
  - CHEST PAIN [None]
  - LUNG NEOPLASM [None]
